FAERS Safety Report 10462278 (Version 1)
Quarter: 2014Q3

REPORT INFORMATION
  Report Type: Spontaneous
  Country: GB (occurrence: GB)
  Receive Date: 20140918
  Receipt Date: 20140918
  Transmission Date: 20150326
  Serious: Yes (Death)
  Sender: FDA-Public Use
  Company Number: GB-ACTAVIS-2014-19993

PATIENT
  Age: 67 Year
  Sex: Male

DRUGS (2)
  1. VINORELBINE [Suspect]
     Active Substance: VINORELBINE\VINORELBINE TARTRATE
     Indication: NON-SMALL CELL LUNG CANCER
     Dosage: 2ND CYCLE- UNCLEAR WHEN GIVEN AS GIVEN AT DIFFERENT HOSPITAL
     Route: 042
  2. CARBOPLATIN (UNKNOWN) [Suspect]
     Active Substance: CARBOPLATIN
     Indication: NON-SMALL CELL LUNG CANCER
     Dosage: 2ND CYCLE- UNCLEAR WHEN GIVEN AS GIVEN AT DIFFERENT HOSPITAL
     Route: 042

REACTIONS (1)
  - Neutropenic sepsis [Fatal]

NARRATIVE: CASE EVENT DATE: 20140501
